FAERS Safety Report 9596844 (Version 3)
Quarter: 2013Q4

REPORT INFORMATION
  Report Type: Spontaneous
  Country: US (occurrence: US)
  Receive Date: 20131004
  Receipt Date: 20131025
  Transmission Date: 20140711
  Serious: Yes (Hospitalization, Other)
  Sender: FDA-Public Use
  Company Number: US-GILEAD-2013-0084780

PATIENT
  Age: 52 Year
  Sex: Female

DRUGS (1)
  1. LETAIRIS [Suspect]
     Indication: PULMONARY HYPERTENSION
     Route: 048
     Dates: start: 20130710

REACTIONS (1)
  - Pneumonia [Recovered/Resolved]
